FAERS Safety Report 8434076-1 (Version None)
Quarter: 2012Q2

REPORT INFORMATION
  Report Type: 
  Country: None (occurrence: None)
  Receive Date: 20120613
  Receipt Date: 20120608
  Transmission Date: 20120825
  Serious: Yes (Hospitalization)
  Sender: FDA-Public Use
  Company Number: IT-PFIZER INC-2012114161

PATIENT
  Age: 64 Year
  Sex: Female

DRUGS (2)
  1. ZYVOX [Suspect]
     Indication: ENTEROCOCCAL INFECTION
     Dosage: 1200 MG, DAILY
     Route: 048
     Dates: start: 20120409, end: 20120412
  2. AMIKACIN SULFATE [Concomitant]
     Dosage: 1 G
     Route: 030

REACTIONS (3)
  - FACE OEDEMA [None]
  - RASH MACULO-PAPULAR [None]
  - PRURITUS [None]
